FAERS Safety Report 25650971 (Version 1)
Quarter: 2025Q3

REPORT INFORMATION
  Report Type: Spontaneous
  Country: EU (occurrence: EU)
  Receive Date: 20250806
  Receipt Date: 20250806
  Transmission Date: 20251020
  Serious: Yes (Other)
  Sender: ELI LILLY AND COMPANY
  Company Number: None

PATIENT
  Age: 51 Year
  Sex: Female

DRUGS (4)
  1. ABEMACICLIB [Suspect]
     Active Substance: ABEMACICLIB
     Indication: Invasive lobular breast carcinoma
     Dosage: 200 MG, DAILY
     Route: 048
     Dates: start: 20230404, end: 20240711
  2. LETROZOLE [Concomitant]
     Active Substance: LETROZOLE
     Indication: Invasive lobular breast carcinoma
     Dosage: 2.5 MG, DAILY
     Route: 048
     Dates: start: 202301
  3. TRIPTORELIN [Concomitant]
     Active Substance: TRIPTORELIN
     Indication: Product used for unknown indication
     Route: 058
     Dates: start: 202301
  4. CHOLECALCIFEROL [Concomitant]
     Active Substance: CHOLECALCIFEROL
     Indication: Product used for unknown indication
     Dosage: 10000 INTERNATIONAL UNIT, WEEKLY (1/W)
     Route: 048

REACTIONS (3)
  - Skin fissures [Recovered/Resolved]
  - Rash maculo-papular [Recovered/Resolved]
  - Off label use [Unknown]

NARRATIVE: CASE EVENT DATE: 20240104
